FAERS Safety Report 21509756 (Version 1)
Quarter: 2022Q4

REPORT INFORMATION
  Report Type: Spontaneous
  Country: FR (occurrence: FR)
  Receive Date: 20221026
  Receipt Date: 20221026
  Transmission Date: 20230112
  Serious: No
  Sender: FDA-Public Use
  Company Number: FR-JAZZ-2022-FR-032794

PATIENT

DRUGS (2)
  1. DEFITELIO [Suspect]
     Active Substance: DEFIBROTIDE SODIUM
     Indication: Product used for unknown indication
     Dosage: 600 MILLIGRAM (8.6MG/KG), BID, AT 2 AM AND 2 PM
  2. DEFITELIO [Suspect]
     Active Substance: DEFIBROTIDE SODIUM
     Dosage: 260 MILLIGRAM (3.7MG/KG/), BID, AT 8 AM AND 8 PM

REACTIONS (1)
  - Off label use [Unknown]
